FAERS Safety Report 15412078 (Version 2)
Quarter: 2018Q3

REPORT INFORMATION
  Report Type: Spontaneous
  Country: US (occurrence: US)
  Receive Date: 20180921
  Receipt Date: 20180921
  Transmission Date: 20181010
  Serious: No
  Sender: FDA-Public Use
  Company Number: US-RECKITT BENCKISER HEALTHCARE INT LIMITED-RB-96448-2017

PATIENT
  Sex: Female

DRUGS (3)
  1. MUCINEX MAXIMUM STRENGTH [Suspect]
     Active Substance: GUAIFENESIN
     Dosage: 1200 MG, SINGLE, TWO TABLETS ON 23?AUG?2017, TOOK ONE TABLET AT 11 AM AND ANOTHER ONE AN HOUR LATER
     Route: 065
     Dates: start: 20170823
  2. MUCINEX MAXIMUM STRENGTH [Suspect]
     Active Substance: GUAIFENESIN
     Indication: PRODUCT USED FOR UNKNOWN INDICATION
     Dosage: 1200 MG, SINGLE, TOOK ONE TABLET AT NIGHT
     Route: 065
     Dates: start: 20170822
  3. MUCINEX MAXIMUM STRENGTH [Suspect]
     Active Substance: GUAIFENESIN
     Dosage: 1200 MG, SINGLE, TWO TABLETS ON 23?AUG?2017, TOOK ONE TABLET AT 11 AM AND ANOTHER ONE AN HOUR LATER
     Route: 065
     Dates: start: 20170823

REACTIONS (1)
  - Incorrect drug administration duration [Recovered/Resolved]

NARRATIVE: CASE EVENT DATE: 20170823
